FAERS Safety Report 5660320-X (Version None)
Quarter: 2008Q1

REPORT INFORMATION
  Report Type: 
  Country: None (occurrence: None)
  Receive Date: 20080311
  Receipt Date: 20070920
  Transmission Date: 20080703
  Serious: No
  Sender: FDA-Public Use
  Company Number: US-BAYER-200713045BCC

PATIENT
  Sex: Female
  Weight: 51 kg

DRUGS (4)
  1. ALEVE [Suspect]
     Indication: PAIN
     Dosage: UNIT DOSE: 220 MG
     Route: 048
     Dates: end: 20070920
  2. METOPROLOL TARTRATE [Concomitant]
  3. AMITRIPTYLINE HCL [Concomitant]
  4. SLEEP MEDICATION [Concomitant]

REACTIONS (1)
  - DIZZINESS [None]
